FAERS Safety Report 13832095 (Version 1)
Quarter: 2017Q3

REPORT INFORMATION
  Report Type: Spontaneous
  Country: US (occurrence: US)
  Receive Date: 20170803
  Receipt Date: 20170803
  Transmission Date: 20171127
  Serious: Yes (Disabling)
  Sender: FDA-Public Use
  Company Number: US-ROCHE-690636

PATIENT
  Sex: Female

DRUGS (1)
  1. BONIVA [Suspect]
     Active Substance: IBANDRONATE SODIUM
     Indication: ARTHRITIS
     Dosage: DATES OF USE: 5 MONTHS DURATION
     Route: 048

REACTIONS (1)
  - Bone pain [Not Recovered/Not Resolved]
